FAERS Safety Report 5083750-6 (Version None)
Quarter: 2006Q3

REPORT INFORMATION
  Report Type: 
  Country: None (occurrence: None)
  Receive Date: 20060818
  Receipt Date: 20050824
  Transmission Date: 20061208
  Serious: Yes (Hospitalization)
  Sender: FDA-Public Use
  Company Number: BE-ABBOTT-05P-013-0309210-00

PATIENT
  Sex: Male

DRUGS (3)
  1. HUMIRA [Suspect]
     Indication: RHEUMATOID ARTHRITIS
     Route: 058
     Dates: start: 20050329, end: 20050601
  2. CELECOXIB [Concomitant]
     Indication: DRUG USE FOR UNKNOWN INDICATION
  3. SULFASALAZINE [Concomitant]
     Indication: DRUG USE FOR UNKNOWN INDICATION

REACTIONS (9)
  - CAUDA EQUINA SYNDROME [None]
  - EPILEPSY [None]
  - ERECTILE DYSFUNCTION [None]
  - GAIT DEVIATION [None]
  - INCONTINENCE [None]
  - MENINGITIS TUBERCULOUS [None]
  - NIGHT SWEATS [None]
  - RHEUMATOID ARTHRITIS [None]
  - WEIGHT DECREASED [None]
